FAERS Safety Report 12949050 (Version 1)
Quarter: 2016Q4

REPORT INFORMATION
  Report Type: Other
  Country: CA (occurrence: CA)
  Receive Date: 20161117
  Receipt Date: 20161117
  Transmission Date: 20170207
  Serious: Yes (Other)
  Sender: FDA-Public Use
  Company Number: CA-NOVEL LABORATORIES, INC-2016-05108

PATIENT
  Age: 76 Year
  Sex: Female

DRUGS (6)
  1. MORPHINE [Suspect]
     Active Substance: MORPHINE
     Indication: INFILTRATION ANAESTHESIA
     Route: 065
  2. EPINEPHRINE. [Concomitant]
     Active Substance: EPINEPHRINE
     Indication: INFILTRATION ANAESTHESIA
     Route: 065
  3. ROPIVACAINE [Concomitant]
     Active Substance: ROPIVACAINE
     Indication: INFILTRATION ANAESTHESIA
     Dosage: IN 125 ML NORMAL SALINE
     Route: 065
  4. FENTANYL. [Interacting]
     Active Substance: FENTANYL
     Indication: SPINAL ANAESTHESIA
     Route: 037
  5. KETOROLAC [Concomitant]
     Active Substance: KETOROLAC\KETOROLAC TROMETHAMINE
     Indication: INFILTRATION ANAESTHESIA
     Route: 065
  6. BUPIVACAINE. [Concomitant]
     Active Substance: BUPIVACAINE
     Indication: SPINAL ANAESTHESIA
     Route: 065

REACTIONS (4)
  - Blood pressure increased [Unknown]
  - Drug interaction [Unknown]
  - Sphincter of Oddi dysfunction [Recovered/Resolved]
  - Sinus bradycardia [Recovered/Resolved]
